FAERS Safety Report 19072502 (Version 3)
Quarter: 2022Q3

REPORT INFORMATION
  Report Type: Report from Study
  Country: JP (occurrence: JP)
  Receive Date: 20210330
  Receipt Date: 20220713
  Transmission Date: 20221027
  Serious: Yes (Other)
  Sender: FDA-Public Use
  Company Number: JP-GLAXOSMITHKLINE-JP2018JPN079635

PATIENT

DRUGS (25)
  1. BELIMUMAB [Suspect]
     Active Substance: BELIMUMAB
     Indication: Systemic lupus erythematosus
     Dosage: 200 MG, WE
     Route: 058
     Dates: start: 20180303, end: 20180324
  2. BELIMUMAB [Suspect]
     Active Substance: BELIMUMAB
     Dosage: 200 MG, QD
     Route: 058
     Dates: start: 20180407, end: 20180407
  3. BELIMUMAB [Suspect]
     Active Substance: BELIMUMAB
     Dosage: 200 MG, WE
     Route: 058
     Dates: start: 20180428, end: 20180714
  4. BELIMUMAB [Suspect]
     Active Substance: BELIMUMAB
     Dosage: 200 MG, WE
     Route: 058
     Dates: start: 20180804, end: 20180818
  5. BELIMUMAB [Suspect]
     Active Substance: BELIMUMAB
     Dosage: 200 MG, WE
     Route: 058
     Dates: start: 20180825, end: 20190302
  6. PREDONINE [Concomitant]
     Active Substance: PREDNISOLONE
     Indication: Systemic lupus erythematosus
     Dosage: UNK
  7. PREDONINE [Concomitant]
     Active Substance: PREDNISOLONE
     Dosage: 27.5 MG, 1D
     Route: 048
     Dates: start: 20180303, end: 20180330
  8. PREDONINE [Concomitant]
     Active Substance: PREDNISOLONE
     Dosage: 25 MG, 1D
     Route: 048
     Dates: start: 20180331, end: 20180615
  9. PREDONINE [Concomitant]
     Active Substance: PREDNISOLONE
     Dosage: 22.5 MG, 1D
     Route: 048
     Dates: start: 20180616
  10. NEORAL CAPSULES [Concomitant]
     Indication: Systemic lupus erythematosus
     Dosage: UNK
  11. EDIROL CAPSULE [Concomitant]
     Dosage: UNK
  12. PERSANTINE [Concomitant]
     Active Substance: DIPYRIDAMOLE
     Indication: Proteinuria
     Dosage: UNK
  13. TAKEPRON OD TABLETS [Concomitant]
     Indication: Gastrooesophageal reflux disease
     Dosage: UNK
  14. SENNOSIDES [Concomitant]
     Active Substance: SENNOSIDES
     Dosage: UNK
  15. CANDESARTAN CILEXETIL TABLET [Concomitant]
     Dosage: UNK
  16. LIMAPROST [Concomitant]
     Active Substance: LIMAPROST
     Indication: Peripheral arterial occlusive disease
     Dosage: UNK
  17. REBAMIPIDE TABLETS [Concomitant]
     Indication: Chronic gastritis
     Dosage: UNK
  18. ROSUVASTATIN CALCIUM [Concomitant]
     Active Substance: ROSUVASTATIN CALCIUM
     Dosage: UNK
  19. LUSEOGLIFLOZIN [Concomitant]
     Active Substance: LUSEOGLIFLOZIN
     Dosage: UNK
  20. FUROSEMIDE [Concomitant]
     Active Substance: FUROSEMIDE
     Dosage: UNK
  21. FEXOFENADINE HYDROCHLORIDE OD TABLET [Concomitant]
     Dosage: UNK
  22. CELECOX TABLETS [Concomitant]
     Dosage: UNK
  23. AMLODIPINE BESYLATE [Concomitant]
     Active Substance: AMLODIPINE BESYLATE
     Dosage: UNK
  24. PAXIL CR [Concomitant]
     Active Substance: PAROXETINE HYDROCHLORIDE
     Dosage: UNK
  25. ONEDURO [Concomitant]
     Active Substance: FENTANYL
     Dosage: UNK

REACTIONS (5)
  - Vulval abscess [Recovered/Resolved]
  - Leukoplakia oral [Recovered/Resolved]
  - Cystitis [Recovered/Resolved]
  - Herpes simplex [Recovered/Resolved]
  - Herpes zoster [Recovered/Resolved]

NARRATIVE: CASE EVENT DATE: 20180313
